FAERS Safety Report 7784030-8 (Version None)
Quarter: 2011Q3

REPORT INFORMATION
  Report Type: 
  Country: None (occurrence: None)
  Receive Date: 20110928
  Receipt Date: 20110923
  Transmission Date: 20111222
  Serious: Yes (Hospitalization, Other)
  Sender: FDA-Public Use
  Company Number: GB-MERCK-0805GBR00029

PATIENT
  Age: 56 Year
  Sex: Male

DRUGS (4)
  1. ASPIRIN [Concomitant]
     Indication: ANTICOAGULANT THERAPY
     Route: 065
  2. ZOCOR [Suspect]
     Route: 048
  3. CLOPIDOGREL BISULFATE [Concomitant]
     Indication: ANTICOAGULANT THERAPY
     Route: 065
  4. ZOCOR [Suspect]
     Route: 048

REACTIONS (8)
  - BLOOD CREATINE PHOSPHOKINASE INCREASED [None]
  - PAIN IN EXTREMITY [None]
  - C-REACTIVE PROTEIN INCREASED [None]
  - COMPARTMENT SYNDROME [None]
  - MUSCLE NECROSIS [None]
  - MYOSITIS [None]
  - ERYTHEMA NODOSUM [None]
  - HAEMOGLOBINURIA [None]
